FAERS Safety Report 10956600 (Version 2)
Quarter: 2015Q2

REPORT INFORMATION
  Report Type: Report from Study
  Country: US (occurrence: US)
  Receive Date: 20150326
  Receipt Date: 20150414
  Transmission Date: 20150821
  Serious: Yes (Other)
  Sender: FDA-Public Use
  Company Number: US-ACTELION-A-US2015-111717

PATIENT
  Age: 73 Year
  Sex: Female

DRUGS (3)
  1. VIAGRA [Concomitant]
     Active Substance: SILDENAFIL CITRATE
  2. VELETRI [Suspect]
     Active Substance: EPOPROSTENOL
     Indication: PULMONARY ARTERIAL HYPERTENSION
     Dosage: 31.6 NG/KG, PER MIN
     Route: 042
     Dates: start: 20100910
  3. WARFARIN [Concomitant]
     Active Substance: WARFARIN

REACTIONS (3)
  - Hepatic mass [Unknown]
  - Catheter site erythema [Recovered/Resolved]
  - Catheter site infection [Recovered/Resolved]
